FAERS Safety Report 23753030 (Version 1)
Quarter: 2024Q2

REPORT INFORMATION
  Report Type: Spontaneous
  Country: US (occurrence: None)
  Receive Date: 20240417
  Receipt Date: 20240417
  Transmission Date: 20240716
  Serious: Yes (Other)
  Sender: FDA-Public Use
  Company Number: 2024A085652

PATIENT
  Age: 19258 Day
  Sex: Male
  Weight: 65.8 kg

DRUGS (1)
  1. TAGRISSO [Suspect]
     Active Substance: OSIMERTINIB
     Indication: Non-small cell lung cancer
     Route: 048
     Dates: start: 20221214

REACTIONS (2)
  - Hypoacusis [Unknown]
  - Tinnitus [Unknown]

NARRATIVE: CASE EVENT DATE: 20231101
